FAERS Safety Report 8966450 (Version 2)
Quarter: 2012Q4

REPORT INFORMATION
  Report Type: 
  Country: US (occurrence: US)
  Receive Date: 20121217
  Receipt Date: 20121227
  Transmission Date: 20130627
  Serious: Yes (Death, Other)
  Sender: FDA-Public Use
  Company Number: US-CELGENEUS-163-21880-12121417

PATIENT
  Age: 74 Year
  Sex: Female
  Weight: 68.1 kg

DRUGS (1)
  1. REVLIMID [Suspect]
     Indication: MULTIPLE MYELOMA
     Dosage: 15 Milligram
     Route: 048
     Dates: start: 201103

REACTIONS (2)
  - Plasma cell myeloma [Fatal]
  - Decubitus ulcer [Unknown]
